FAERS Safety Report 25282763 (Version 1)
Quarter: 2025Q2

REPORT INFORMATION
  Report Type: Spontaneous
  Country: US (occurrence: None)
  Receive Date: 20250507
  Receipt Date: 20250507
  Transmission Date: 20250717
  Serious: Yes (Death, Hospitalization)
  Sender: FDA-CTU
  Company Number: None

PATIENT
  Age: 72 Year
  Sex: Male

DRUGS (1)
  1. OFEV [Suspect]
     Active Substance: NINTEDANIB
     Indication: Idiopathic pulmonary fibrosis
     Dosage: FREQUENCY : TWICE A DAY;?
     Route: 048
     Dates: start: 20210226, end: 20230628

REACTIONS (6)
  - Hypoxia [None]
  - Respiratory failure [None]
  - Cardiac arrest [None]
  - Pulse absent [None]
  - Respiratory arrest [None]
  - Mydriasis [None]

NARRATIVE: CASE EVENT DATE: 20230628
